FAERS Safety Report 23770054 (Version 1)
Quarter: 2024Q2

REPORT INFORMATION
  Report Type: Spontaneous
  Country: CN (occurrence: None)
  Receive Date: 20240422
  Receipt Date: 20240422
  Transmission Date: 20240715
  Serious: Yes (Other)
  Sender: FDA-Public Use
  Company Number: 2024A090591

PATIENT
  Age: 61 Year
  Sex: Female

DRUGS (1)
  1. GEFITINIB [Suspect]
     Active Substance: GEFITINIB
     Indication: Lung adenocarcinoma
     Route: 048
     Dates: start: 201905

REACTIONS (3)
  - Malignant neoplasm progression [Unknown]
  - Drug resistance [Unknown]
  - Malignant transformation [Unknown]
